FAERS Safety Report 7559822-0 (Version None)
Quarter: 2011Q2

REPORT INFORMATION
  Report Type: 
  Country: None (occurrence: None)
  Receive Date: 20110607
  Receipt Date: 20110526
  Transmission Date: 20111010
  Serious: Yes (Other)
  Sender: FDA-Public Use
  Company Number: AECAN200900037

PATIENT
  Age: 11 Year
  Sex: Male

DRUGS (2)
  1. IGIVNEX [Suspect]
     Indication: IDIOPATHIC THROMBOCYTOPENIC PURPURA
     Dosage: 30 GM; 1X;IV
     Route: 042
     Dates: start: 20081028, end: 20081109
  2. GAMUNEX [Suspect]
     Indication: IDIOPATHIC THROMBOCYTOPENIC PURPURA
     Dosage: 10 GM;1X;IV
     Route: 042
     Dates: start: 20081109, end: 20081109

REACTIONS (6)
  - TOOTH ABSCESS [None]
  - SUPERIOR SAGITTAL SINUS THROMBOSIS [None]
  - IDIOPATHIC THROMBOCYTOPENIC PURPURA [None]
  - DISEASE RECURRENCE [None]
  - HEADACHE [None]
  - CONVULSION [None]
